FAERS Safety Report 13292947 (Version 2)
Quarter: 2017Q2

REPORT INFORMATION
  Report Type: Spontaneous
  Country: US (occurrence: US)
  Receive Date: 20170303
  Receipt Date: 20170619
  Transmission Date: 20170830
  Serious: Yes (Hospitalization)
  Sender: FDA-Public Use
  Company Number: US-ASTELLAS-2017US007758

PATIENT
  Age: 62 Year
  Sex: Male

DRUGS (2)
  1. XTANDI [Suspect]
     Active Substance: ENZALUTAMIDE
     Indication: PROSTATE CANCER
     Route: 048
     Dates: start: 20160813
  2. XTANDI [Interacting]
     Active Substance: ENZALUTAMIDE
     Route: 048

REACTIONS (2)
  - Malaise [Unknown]
  - Drug interaction [Unknown]
